FAERS Safety Report 8906111 (Version 2)
Quarter: 2012Q4

REPORT INFORMATION
  Report Type: 
  Country: BE (occurrence: BE)
  Receive Date: 20121112
  Receipt Date: 20121129
  Transmission Date: 20130627
  Serious: Yes (Other)
  Sender: FDA-Public Use
  Company Number: BE-RANBAXY-2012RR-61798

PATIENT
  Age: 46 Year
  Sex: Female

DRUGS (5)
  1. GABAPENTIN [Suspect]
     Indication: CONVULSION
     Dosage: UNK
     Route: 065
  2. LAMOTRIGINE [Suspect]
     Indication: CONVULSION
     Dosage: UNK
     Route: 065
  3. LAMOTRIGINE [Suspect]
     Indication: CONVULSION
     Dosage: UNK
     Route: 065
  4. LEVETIRACETAM [Suspect]
     Indication: CONVULSION
     Dosage: UNK
     Route: 065
  5. VALPROIC ACID [Suspect]
     Indication: CONVULSION
     Dosage: UNK
     Route: 065

REACTIONS (2)
  - Hypothermia [Recovered/Resolved]
  - Incorrect dose administered [Recovered/Resolved]
